FAERS Safety Report 6412972-4 (Version None)
Quarter: 2009Q4

REPORT INFORMATION
  Report Type: 
  Country: None (occurrence: None)
  Receive Date: 20091023
  Receipt Date: 20091009
  Transmission Date: 20100525
  Serious: Yes (Other)
  Sender: FDA-Public Use
  Company Number: PHHY2009US44113

PATIENT
  Age: 57 Year
  Sex: Male

DRUGS (1)
  1. GLEEVEC [Suspect]
     Indication: GASTROINTESTINAL STROMAL TUMOUR
     Dosage: 400 MG DAILY

REACTIONS (7)
  - ACUTE MYELOID LEUKAEMIA [None]
  - ACUTE MYELOID LEUKAEMIA RECURRENT [None]
  - FATIGUE [None]
  - HEPATIC ENZYME INCREASED [None]
  - MALIGNANT TUMOUR EXCISION [None]
  - NEOPLASM RECURRENCE [None]
  - THROMBOCYTOPENIA [None]
